FAERS Safety Report 23788599 (Version 1)
Quarter: 2024Q2

REPORT INFORMATION
  Report Type: Spontaneous
  Country: PT (occurrence: DK)
  Receive Date: 20240426
  Receipt Date: 20240426
  Transmission Date: 20240716
  Serious: Yes (Other)
  Sender: FDA-Public Use
  Company Number: DK-BIAL-BIAL-16601

PATIENT

DRUGS (6)
  1. ESLICARBAZEPINE ACETATE [Suspect]
     Active Substance: ESLICARBAZEPINE ACETATE
     Indication: Petit mal epilepsy
     Dosage: 800 MILLIGRAM PER DAY
     Route: 065
  2. BRIVARACETAM [Suspect]
     Active Substance: BRIVARACETAM
     Indication: Petit mal epilepsy
     Dosage: 200 MILLIGRAM PER DAY
     Route: 065
  3. BRIVARACETAM [Suspect]
     Active Substance: BRIVARACETAM
     Dosage: 225 MILLIGRAM PER DAY
     Route: 065
  4. CREATINE [Suspect]
     Active Substance: CREATINE
     Indication: Supplementation therapy
     Dosage: 400 MG/KG/DAY
     Route: 065
  5. ARGININE [Suspect]
     Active Substance: ARGININE
     Indication: Supplementation therapy
     Dosage: 400 MG/KG/DAY
     Route: 065
  6. GLYCINE [Suspect]
     Active Substance: GLYCINE
     Indication: Supplementation therapy
     Dosage: 150 MG/KG/DAY
     Route: 065

REACTIONS (3)
  - Petit mal epilepsy [Unknown]
  - Automatism [Unknown]
  - Drug ineffective for unapproved indication [Unknown]
